FAERS Safety Report 6579594-6 (Version None)
Quarter: 2010Q1

REPORT INFORMATION
  Report Type: 
  Country: None (occurrence: None)
  Receive Date: 20100209
  Receipt Date: 20100209
  Transmission Date: 20100710
  Serious: Yes (Life-Threatening)
  Sender: FDA-Public Use
  Company Number: None

PATIENT
  Sex: Female
  Weight: 65.7716 kg

DRUGS (1)
  1. PROVIGIL [Suspect]
     Indication: SOMNOLENCE

REACTIONS (3)
  - DRUG HYPERSENSITIVITY [None]
  - HYPERTENSION [None]
  - ORAL CANDIDIASIS [None]
